FAERS Safety Report 25356386 (Version 1)
Quarter: 2025Q2

REPORT INFORMATION
  Report Type: Spontaneous
  Country: BR (occurrence: BR)
  Receive Date: 20250526
  Receipt Date: 20250526
  Transmission Date: 20250717
  Serious: Yes (Hospitalization)
  Sender: BOEHRINGER INGELHEIM
  Company Number: BR-Komodo Health-a23aa000007fde5AAA

PATIENT
  Age: 63 Year
  Sex: Male
  Weight: 77 kg

DRUGS (1)
  1. SPIRIVA [Suspect]
     Active Substance: TIOTROPIUM BROMIDE MONOHYDRATE
     Indication: Pneumonia
     Dosage: SPIRIVA IN AEROSOL FORM, 2 PUFFS A DAY, ONE IN THE MORNING AND ONE AT NIGHT.

REACTIONS (11)
  - Pneumonia [Recovered/Resolved]
  - Dyspnoea [Unknown]
  - Weight decreased [Unknown]
  - Aneurysm [Unknown]
  - Pulmonary function test decreased [Unknown]
  - Bedridden [Unknown]
  - Gait inability [Unknown]
  - Off label use [Unknown]
  - Dyspnoea [Unknown]
  - Pneumonia [Unknown]
  - Intentional product use issue [Unknown]

NARRATIVE: CASE EVENT DATE: 20250101
